FAERS Safety Report 4405728-5 (Version None)
Quarter: 2004Q3

REPORT INFORMATION
  Report Type: 
  Country: None (occurrence: None)
  Receive Date: 20040723
  Receipt Date: 20031202
  Transmission Date: 20050211
  Serious: No
  Sender: FDA-Public Use
  Company Number: US-GLAXOSMITHKLINE-A0441663A

PATIENT
  Sex: Female

DRUGS (6)
  1. AVANDIA [Suspect]
     Dosage: 8 PER DAY
     Route: 048
     Dates: start: 20030801
  2. TOPROL-XL [Concomitant]
  3. GLUCOPHAGE [Concomitant]
  4. GLUCOTROL [Concomitant]
  5. VERAPAMIL [Concomitant]
  6. ANAPROL [Concomitant]

REACTIONS (1)
  - DYSPNOEA EXERTIONAL [None]
